FAERS Safety Report 25410968 (Version 1)
Quarter: 2025Q2

REPORT INFORMATION
  Report Type: Spontaneous
  Country: IS (occurrence: IS)
  Receive Date: 20250609
  Receipt Date: 20250609
  Transmission Date: 20250716
  Serious: Yes (Other)
  Sender: NOVARTIS
  Company Number: None

PATIENT
  Sex: Female

DRUGS (4)
  1. KISQALI [Suspect]
     Active Substance: RIBOCICLIB SUCCINATE
     Indication: Breast cancer
     Route: 065
     Dates: start: 20230406
  2. KISQALI [Suspect]
     Active Substance: RIBOCICLIB SUCCINATE
     Route: 065
     Dates: start: 20230519
  3. KISQALI [Suspect]
     Active Substance: RIBOCICLIB SUCCINATE
     Dosage: 200 MG, QD
     Route: 065
  4. KISQALI [Suspect]
     Active Substance: RIBOCICLIB SUCCINATE
     Dosage: 100 MG DAILY FOR 21 DAYS. THEN WEEK PAUSE.)
     Route: 065
     Dates: start: 20241118

REACTIONS (3)
  - Liver function test increased [Recovering/Resolving]
  - Neutropenia [Recovering/Resolving]
  - Thrombocytopenia [Recovering/Resolving]

NARRATIVE: CASE EVENT DATE: 20250320
